FAERS Safety Report 18660015 (Version 1)
Quarter: 2020Q4

REPORT INFORMATION
  Report Type: Spontaneous
  Country: GR (occurrence: GR)
  Receive Date: 20201223
  Receipt Date: 20201223
  Transmission Date: 20210114
  Serious: Yes (Other)
  Sender: FDA-Public Use
  Company Number: GR-SLATE RUN PHARMACEUTICALS-20GR000349

PATIENT

DRUGS (8)
  1. MIDAZOLAM. [Concomitant]
     Active Substance: MIDAZOLAM
     Indication: GENERALISED TONIC-CLONIC SEIZURE
     Route: 042
  2. CEFTRIAXONE. [Concomitant]
     Active Substance: CEFTRIAXONE
     Indication: ANTIVIRAL TREATMENT
     Route: 042
  3. GAMMA-GLOBULIN [Concomitant]
     Active Substance: IMMUNE GLOBULIN NOS
     Indication: HUMAN HERPESVIRUS 7 INFECTION
     Dosage: 2 GRAM PER KILOGRAM
     Route: 042
  4. ACYCLOVIR [ACICLOVIR] [Concomitant]
     Active Substance: ACYCLOVIR
     Indication: ANTIVIRAL TREATMENT
     Route: 065
  5. OTHER THERAPEUTIC PRODUCTS [Concomitant]
     Active Substance: UNSPECIFIED INGREDIENT
     Indication: GENERALISED TONIC-CLONIC SEIZURE
     Route: 042
  6. METHYLPREDNISOLONE. [Concomitant]
     Active Substance: METHYLPREDNISOLONE
     Indication: BRAIN OEDEMA
     Dosage: 30 MILLIGRAM PER KILOGRAM, QD
     Route: 065
  7. GANCICLOVIR USP [Suspect]
     Active Substance: GANCICLOVIR
     Indication: HUMAN HERPESVIRUS 7 INFECTION
     Dosage: 5 MICROGRAM PER KILOGRAM, QD
     Route: 065
  8. LEVETIRACETAM. [Concomitant]
     Active Substance: LEVETIRACETAM
     Indication: SEIZURE
     Route: 065

REACTIONS (3)
  - Cerebral ventricle dilatation [Unknown]
  - Off label use [Unknown]
  - Benign enlargement of the subarachnoid spaces [Unknown]
